FAERS Safety Report 7448177 (Version 3)
Quarter: 2013Q3

REPORT INFORMATION
  Report Type: Spontaneous
  Country: JP (occurrence: JP)
  Receive Date: 20100630
  Receipt Date: 20130909
  Transmission Date: 20140515
  Serious: Yes (Death, Hospitalization)
  Sender: FDA-Public Use
  Company Number: JP-BAYER-201013104BYL

PATIENT
  Age: 54 Year
  Sex: Female
  Weight: 65.6 kg

DRUGS (3)
  1. NEXAVAR [Suspect]
     Indication: HEPATOCELLULAR CARCINOMA
     Route: 048
     Dates: start: 20100526, end: 20100607
  2. GLYCYRON [Concomitant]
     Indication: CHRONIC HEPATITIS C
     Dosage: 6 DF (DAILY DOSE), , ORAL
     Route: 048
  3. URSO [Concomitant]
     Indication: CHRONIC HEPATITIS C
     Dosage: 600 MG (DAILY DOSE), , ORAL
     Route: 048

REACTIONS (2)
  - Hepatic encephalopathy [Recovered/Resolved]
  - Hepatocellular carcinoma [Fatal]
